FAERS Safety Report 24841563 (Version 1)
Quarter: 2025Q1

REPORT INFORMATION
  Report Type: Report from Study
  Country: IN (occurrence: IN)
  Receive Date: 20250114
  Receipt Date: 20250114
  Transmission Date: 20250409
  Serious: Yes (Hospitalization, Other)
  Sender: DAIICHI
  Company Number: IN-AstraZeneca-CH-00779821A

PATIENT
  Sex: Male
  Weight: 171 kg

DRUGS (1)
  1. ENHERTU [Suspect]
     Active Substance: FAM-TRASTUZUMAB DERUXTECAN-NXKI
     Indication: Gastric polyps
     Dosage: 500 MILLIGRAM, TID
     Route: 041

REACTIONS (6)
  - Pyrexia [Unknown]
  - Hyponatraemia [Unknown]
  - Pneumonia [Unknown]
  - Increased steroid activity [Unknown]
  - Snoring [Unknown]
  - Fatigue [Unknown]
